FAERS Safety Report 6330832-4 (Version None)
Quarter: 2009Q3

REPORT INFORMATION
  Report Type: 
  Country: None (occurrence: None)
  Receive Date: 20090827
  Receipt Date: 20090821
  Transmission Date: 20100115
  Serious: Yes (Other)
  Sender: FDA-Public Use
  Company Number: PHHY2009JP35553

PATIENT
  Sex: Male

DRUGS (13)
  1. DIOVAN [Suspect]
     Indication: HYPERTENSION
     Dosage: 40 MG, QD
     Route: 048
     Dates: start: 20080416, end: 20080618
  2. NORVASC [Concomitant]
     Indication: HYPERTENSION
     Dosage: 2.5 MG, UNK
     Route: 048
     Dates: start: 20080319, end: 20080401
  3. CALBLOCK [Concomitant]
     Indication: HYPERTENSION
     Dosage: 32 MG, UNK
     Route: 048
     Dates: start: 20080402
  4. CARDENALIN [Concomitant]
     Indication: HYPERTENSION
     Dosage: 4 MG, UNK
     Route: 048
     Dates: start: 20080507
  5. TAKEPRON [Concomitant]
     Dosage: 15 MG, UNK
     Route: 048
     Dates: start: 20080319
  6. ALFAROL [Concomitant]
     Dosage: 0.5 UG, UNK
     Route: 048
     Dates: start: 20080319
  7. SALOBEL [Concomitant]
     Dosage: 50 MG, UNK
     Route: 048
     Dates: start: 20080319
  8. FERO-GRADUMET [Concomitant]
     Dosage: 105 MG, UNK
     Route: 048
     Dates: start: 20080319
  9. CALCIUM CARBONATE [Concomitant]
     Dosage: 1500 MG, UNK
     Route: 048
     Dates: start: 20080319
  10. KALIMATE [Concomitant]
     Dosage: 15 G, UNK
     Route: 048
     Dates: start: 20080319
  11. SODIUM BICARBONATE IN PLASTIC CONTAINER [Concomitant]
     Dosage: 3 G, UNK
     Route: 048
     Dates: start: 20080319
  12. KREMEZIN [Concomitant]
     Dosage: 6 G, UNK
     Route: 048
     Dates: start: 20080319
  13. EPOGIN [Concomitant]
     Dosage: 9000 IU, UNK
     Route: 058
     Dates: start: 20080319

REACTIONS (2)
  - DIALYSIS [None]
  - RENAL IMPAIRMENT [None]
